FAERS Safety Report 11101540 (Version 2)
Quarter: 2015Q2

REPORT INFORMATION
  Report Type: Spontaneous
  Country: US (occurrence: US)
  Receive Date: 20150508
  Receipt Date: 20150629
  Transmission Date: 20150821
  Serious: Yes (Other)
  Sender: FDA-Public Use
  Company Number: US-MYLANLABS-2015M1014643

PATIENT

DRUGS (12)
  1. RANITIDINE [Concomitant]
     Active Substance: RANITIDINE\RANITIDINE HYDROCHLORIDE
     Indication: GASTROOESOPHAGEAL REFLUX DISEASE
     Dosage: 150 MG, QID
     Dates: start: 2005
  2. KYOLIC [Concomitant]
     Indication: ANTIOXIDANT THERAPY
     Dosage: 1200 MG, QD
     Dates: start: 1998
  3. GLUCOSAMINE + CHONDROITIN          /01430901/ [Concomitant]
     Indication: ARTHRALGIA
  4. WARFARIN [Concomitant]
     Active Substance: WARFARIN
     Indication: ANTICOAGULANT THERAPY
     Dosage: UNK
     Dates: start: 1998
  5. VITAMIN E [Concomitant]
     Active Substance: .ALPHA.-TOCOPHEROL
     Dosage: 200 MG, QD
     Dates: start: 2006
  6. GLUCOSAMINE + CHONDROITIN          /01430901/ [Concomitant]
     Indication: MYALGIA
     Dosage: 1000 MG, BID
     Dates: start: 1998
  7. FISH OIL [Concomitant]
     Active Substance: FISH OIL
     Dosage: 2000 MG, QD
     Dates: start: 2003
  8. CLORAZEPATE [Concomitant]
     Active Substance: CLORAZEPATE DIPOTASSIUM
     Indication: EPILEPSY
     Dosage: 3.75 MG, BID
     Dates: start: 1991
  9. LEVETIRACETAM. [Suspect]
     Active Substance: LEVETIRACETAM
     Indication: EPILEPSY
     Dosage: 500 MG, BID
     Dates: end: 20090107
  10. MULTIVITAMIN                       /00097801/ [Concomitant]
     Active Substance: VITAMINS
     Dosage: 1 DF, QD
     Dates: start: 2003
  11. ASPIRIN                            /00002701/ [Concomitant]
     Active Substance: ASPIRIN
     Indication: ANTICOAGULANT THERAPY
     Dosage: 81 MG, UNK
     Dates: start: 2004
  12. RANITIDINE [Concomitant]
     Active Substance: RANITIDINE\RANITIDINE HYDROCHLORIDE
     Indication: ACQUIRED OESOPHAGEAL WEB

REACTIONS (6)
  - Seizure [Recovered/Resolved]
  - Pain [Recovered/Resolved]
  - Dizziness [Recovered/Resolved]
  - Asthenia [Recovered/Resolved]
  - Urinary incontinence [Recovered/Resolved]
  - Tremor [Recovered/Resolved]

NARRATIVE: CASE EVENT DATE: 20090102
